FAERS Safety Report 15087652 (Version 1)
Quarter: 2018Q2

REPORT INFORMATION
  Report Type: Report from Study
  Country: None (occurrence: BR)
  Receive Date: 20180629
  Receipt Date: 20180629
  Transmission Date: 20180711
  Serious: Yes (Other)
  Sender: FDA-Public Use
  Company Number: BR-ABBVIE-18K-020-2401867-00

PATIENT
  Age: 55 Year
  Sex: Female
  Weight: 47 kg

DRUGS (5)
  1. HUMIRA [Suspect]
     Active Substance: ADALIMUMAB
     Indication: RHEUMATOID ARTHRITIS
     Route: 058
     Dates: start: 20141101, end: 20180227
  2. HUMIRA [Suspect]
     Active Substance: ADALIMUMAB
     Route: 058
     Dates: start: 20180329, end: 20180504
  3. METHOTREXATE. [Concomitant]
     Active Substance: METHOTREXATE
     Indication: ARTHRITIS
  4. FOLIC ACID. [Concomitant]
     Active Substance: FOLIC ACID
     Indication: ARTHRITIS
  5. PURAN [Concomitant]
     Active Substance: LEVOTHYROXINE SODIUM
     Indication: THYROID HORMONE REPLACEMENT THERAPY

REACTIONS (8)
  - Procedural pain [Unknown]
  - Benign neoplasm of thyroid gland [Recovered/Resolved]
  - Weight decreased [Recovered/Resolved]
  - Rotator cuff syndrome [Recovered/Resolved]
  - Epicondylitis [Recovered/Resolved]
  - Renal cyst [Recovering/Resolving]
  - Dental implantation [Recovered/Resolved]
  - Epicondylitis [Unknown]

NARRATIVE: CASE EVENT DATE: 2015
